FAERS Safety Report 7941673-6 (Version None)
Quarter: 2011Q4

REPORT INFORMATION
  Report Type: 
  Country: None (occurrence: None)
  Receive Date: 20111128
  Receipt Date: 20111128
  Transmission Date: 20120403
  Serious: No
  Sender: FDA-Public Use
  Company Number: None

PATIENT
  Age: 49 Year
  Sex: Female
  Weight: 46.72 kg

DRUGS (3)
  1. PLAVIX [Suspect]
     Indication: ANTICOAGULANT THERAPY
     Dates: start: 20080421, end: 20090421
  2. PAXIL [Concomitant]
  3. ASPIRIN [Concomitant]

REACTIONS (10)
  - CHEST PAIN [None]
  - COUGH [None]
  - ACTIVITIES OF DAILY LIVING IMPAIRED [None]
  - LOSS OF EMPLOYMENT [None]
  - ABDOMINAL PAIN [None]
  - HEADACHE [None]
  - VISION BLURRED [None]
  - CHEST DISCOMFORT [None]
  - OEDEMA PERIPHERAL [None]
  - CARDIAC FAILURE CONGESTIVE [None]
